FAERS Safety Report 14761028 (Version 3)
Quarter: 2018Q2

REPORT INFORMATION
  Report Type: Spontaneous
  Country: US (occurrence: US)
  Receive Date: 20180415
  Receipt Date: 20180524
  Transmission Date: 20180711
  Serious: No
  Sender: FDA-Public Use
  Company Number: PHEH2018US013641

PATIENT
  Sex: Female

DRUGS (2)
  1. VITAMIN [Concomitant]
     Active Substance: VITAMINS
     Indication: PRODUCT USED FOR UNKNOWN INDICATION
     Route: 065
  2. TOBRAMYCIN AND DEXAMETHASONE [Suspect]
     Active Substance: DEXAMETHASONE\TOBRAMYCIN
     Indication: PRODUCT USED FOR UNKNOWN INDICATION
     Dosage: 3 DROPS FOR THE FIRST WEEK AND 2 TIMES A DAY FOR THE SECOND WEEK
     Route: 047

REACTIONS (3)
  - Headache [Unknown]
  - Eye disorder [Unknown]
  - Liquid product physical issue [Unknown]
